FAERS Safety Report 5491816-1 (Version None)
Quarter: 2007Q4

REPORT INFORMATION
  Report Type: 
  Country: None (occurrence: None)
  Receive Date: 20071018
  Receipt Date: 20071009
  Transmission Date: 20080405
  Serious: Yes (Hospitalization)
  Sender: FDA-Public Use
  Company Number: 2007-04566

PATIENT
  Age: 60 Year
  Sex: Male
  Weight: 81.6 kg

DRUGS (2)
  1. ACTIGALL [Suspect]
     Indication: BILIARY CIRRHOSIS PRIMARY
     Dosage: 1 CAPSUL, DAILY, ORAL
     Route: 048
     Dates: start: 19920101
  2. CORTICOSTEROID NOS (CORTICOSTEROID NOS) AEROSOL (INHALATION) [Concomitant]

REACTIONS (3)
  - CUTANEOUS VASCULITIS [None]
  - EOSINOPHILIA [None]
  - GASTRITIS [None]
